FAERS Safety Report 5869243-4 (Version None)
Quarter: 2008Q3

REPORT INFORMATION
  Report Type: 
  Country: None (occurrence: None)
  Receive Date: 20080903
  Receipt Date: 20080821
  Transmission Date: 20090109
  Serious: Yes (Hospitalization)
  Sender: FDA-Public Use
  Company Number: US-ELI_LILLY_AND_COMPANY-US200808004303

PATIENT
  Sex: Female
  Weight: 88.889 kg

DRUGS (6)
  1. BYETTA [Suspect]
     Indication: TYPE 2 DIABETES MELLITUS
     Dosage: 5 UG, 2/D
     Route: 058
     Dates: start: 20070101, end: 20070101
  2. BYETTA [Suspect]
     Dosage: 10 UG, EACH MORNING
     Route: 058
     Dates: start: 20070101, end: 20080820
  3. GLYBURIDE [Concomitant]
     Dosage: 2.5 UG, EACH MORNING
  4. SYNTHROID [Concomitant]
     Dosage: 175 UG, EACH MORNING
     Route: 048
  5. FUROSEMIDE [Concomitant]
     Indication: BLOOD PRESSURE
     Dosage: 40 MG, DAILY (1/D)
     Route: 048
  6. FEXOFENADINE [Concomitant]
     Indication: MULTIPLE ALLERGIES
     Dosage: 180 MG, AS NEEDED
     Route: 048

REACTIONS (4)
  - ABDOMINAL HERNIA [None]
  - ABDOMINAL PAIN [None]
  - CHOLELITHIASIS [None]
  - NAUSEA [None]
